FAERS Safety Report 6739997-3 (Version None)
Quarter: 2010Q2

REPORT INFORMATION
  Report Type: 
  Country: None (occurrence: None)
  Receive Date: 20100525
  Receipt Date: 20100521
  Transmission Date: 20101027
  Serious: Yes (Other)
  Sender: FDA-Public Use
  Company Number: FR-BRISTOL-MYERS SQUIBB COMPANY-15115447

PATIENT
  Age: 74 Year
  Sex: Female

DRUGS (2)
  1. HYDREA [Suspect]
     Indication: THROMBOCYTOSIS
     Dosage: DURATION OF THERAPY: AROUND ONE YEAR
     Dates: start: 20090101
  2. LANTUS [Suspect]
     Indication: DIABETES MELLITUS

REACTIONS (2)
  - DIABETES MELLITUS INADEQUATE CONTROL [None]
  - NECROSIS [None]
